FAERS Safety Report 25041351 (Version 1)
Quarter: 2025Q1

REPORT INFORMATION
  Report Type: Spontaneous
  Country: US (occurrence: US)
  Receive Date: 20250305
  Receipt Date: 20250305
  Transmission Date: 20250409
  Serious: No
  Sender: ABBVIE
  Company Number: US-ABBVIE-6163499

PATIENT
  Sex: Female

DRUGS (1)
  1. ARMOUR THYROID [Suspect]
     Active Substance: THYROID, PORCINE
     Indication: Product used for unknown indication
     Route: 048

REACTIONS (1)
  - Hypersensitivity [Unknown]
